FAERS Safety Report 18265789 (Version 1)
Quarter: 2020Q3

REPORT INFORMATION
  Report Type: Other
  Country: BR (occurrence: BR)
  Receive Date: 20200914
  Receipt Date: 20200914
  Transmission Date: 20201103
  Serious: Yes (Other)
  Sender: FDA-Public Use
  Company Number: BR-ROCHE-2123250

PATIENT
  Sex: Female
  Weight: 80 kg

DRUGS (2)
  1. ACTEMRA [Suspect]
     Active Substance: TOCILIZUMAB
     Indication: RHEUMATOID ARTHRITIS
     Route: 042
     Dates: start: 20180309
  2. CORTICOID (UNK INGREDIENTS) [Concomitant]
     Indication: RHEUMATOID ARTHRITIS
     Dosage: 2 TABLETS PER DAY

REACTIONS (2)
  - COVID-19 [Recovered/Resolved]
  - Dengue fever [Recovered/Resolved]
